FAERS Safety Report 20839624 (Version 1)
Quarter: 2022Q2

REPORT INFORMATION
  Report Type: Spontaneous
  Country: US (occurrence: US)
  Receive Date: 20220517
  Receipt Date: 20220517
  Transmission Date: 20220720
  Serious: No
  Sender: FDA-Public Use
  Company Number: US-BRISTOL-MYERS SQUIBB COMPANY-2022-035528

PATIENT
  Age: 81 Year
  Sex: Male

DRUGS (1)
  1. REVLIMID [Suspect]
     Active Substance: LENALIDOMIDE
     Indication: Plasma cell myeloma
     Dosage: FREQUENCY : TAKE 1 CAPSULE (10MG) BY MOUTH  DAILY FOR 21 DAYS  ON THEN  7 DAYS OFF.
     Route: 048
     Dates: start: 20220411

REACTIONS (2)
  - Pruritus [Unknown]
  - Swelling face [Unknown]
